FAERS Safety Report 15061325 (Version 1)
Quarter: 2018Q2

REPORT INFORMATION
  Report Type: Spontaneous
  Country: US (occurrence: US)
  Receive Date: 20180625
  Receipt Date: 20180625
  Transmission Date: 20180711
  Serious: No
  Sender: FDA-Public Use
  Company Number: US-ROCHE-2045788

PATIENT
  Sex: Female

DRUGS (1)
  1. XELODA [Suspect]
     Active Substance: CAPECITABINE
     Indication: PRODUCT USED FOR UNKNOWN INDICATION
     Dosage: TAKE 1500MG AM AND TAKE 100MG IN PM FOR 7 DAY
     Route: 048
     Dates: start: 20170719, end: 20171219

REACTIONS (2)
  - Drug ineffective [Unknown]
  - No adverse event [Unknown]
